FAERS Safety Report 10008288 (Version 3)
Quarter: 2015Q3

REPORT INFORMATION
  Report Type: Spontaneous
  Country: US (occurrence: US)
  Receive Date: 20140313
  Receipt Date: 20150814
  Transmission Date: 20151125
  Serious: No
  Sender: FDA-Public Use
  Company Number: US-GILEAD-2013-0074805

PATIENT
  Age: 74 Year
  Sex: Male

DRUGS (3)
  1. LETAIRIS [Suspect]
     Active Substance: AMBRISENTAN
     Indication: HYPERTENSION
  2. LETAIRIS [Suspect]
     Active Substance: AMBRISENTAN
     Indication: PULMONARY HYPERTENSION
     Dates: start: 20130415
  3. LETAIRIS [Suspect]
     Active Substance: AMBRISENTAN
     Indication: CARDIAC VALVE DISEASE

REACTIONS (2)
  - Dyspnoea [Unknown]
  - Fatigue [Unknown]
